FAERS Safety Report 6317912-4 (Version None)
Quarter: 2009Q3

REPORT INFORMATION
  Report Type: 
  Country: None (occurrence: None)
  Receive Date: 20090821
  Receipt Date: 20090814
  Transmission Date: 20100115
  Serious: Yes (Hospitalization)
  Sender: FDA-Public Use
  Company Number: FR-AVENTIS-200913044FR

PATIENT
  Age: 60 Year
  Sex: Male

DRUGS (8)
  1. BIRODOGYL [Suspect]
     Indication: TOOTH INFECTION
     Route: 048
     Dates: start: 20090501, end: 20090501
  2. IBUPROFENE [Suspect]
     Indication: TOOTH INFECTION
     Route: 048
     Dates: start: 20090501, end: 20090501
  3. KARDEGIC                           /00002703/ [Concomitant]
     Indication: ATRIAL FLUTTER
     Route: 048
  4. FLECAINIDE ACETATE [Concomitant]
     Indication: ATRIAL FLUTTER
     Route: 048
  5. ALLOPURINOL [Concomitant]
  6. LASILIX                            /00032601/ [Concomitant]
     Route: 048
  7. DIFFU K [Concomitant]
     Route: 048
  8. ISOPTIN [Concomitant]
     Route: 048

REACTIONS (1)
  - DYSPNOEA [None]
